FAERS Safety Report 11549046 (Version 2)
Quarter: 2015Q3

REPORT INFORMATION
  Report Type: Spontaneous
  Country: US (occurrence: US)
  Receive Date: 20150903
  Receipt Date: 20150916
  Transmission Date: 20151125
  Serious: No
  Sender: FDA-Public Use
  Company Number: US-ELI_LILLY_AND_COMPANY-US201301000199

PATIENT
  Age: 70 Year
  Sex: Male
  Weight: 81.8 kg

DRUGS (1)
  1. HUMALOG [Suspect]
     Active Substance: INSULIN LISPRO
     Indication: TYPE 1 DIABETES MELLITUS
     Dosage: 45 U, QD
     Route: 058
     Dates: start: 1997

REACTIONS (5)
  - Blood glucose increased [Recovered/Resolved]
  - Macular degeneration [Unknown]
  - Blood glucose decreased [Recovered/Resolved]
  - Cataract [Unknown]
  - Vision blurred [Unknown]

NARRATIVE: CASE EVENT DATE: 20130622
